FAERS Safety Report 8189808-7 (Version None)
Quarter: 2012Q1

REPORT INFORMATION
  Report Type: 
  Country: None (occurrence: None)
  Receive Date: 20120307
  Receipt Date: 20110629
  Transmission Date: 20120608
  Serious: No
  Sender: FDA-Public Use
  Company Number: US-GLAXOSMITHKLINE-A0933877A

PATIENT

DRUGS (2)
  1. NO CONCURRENT MEDICATION [Concomitant]
  2. REQUIP [Suspect]
     Dosage: 32MG PER DAY
     Route: 048

REACTIONS (1)
  - OVERDOSE [None]
